FAERS Safety Report 4803642-4 (Version None)
Quarter: 2005Q4

REPORT INFORMATION
  Report Type: 
  Country: None (occurrence: None)
  Receive Date: 20051014
  Receipt Date: 20050912
  Transmission Date: 20060501
  Serious: No
  Sender: FDA-Public Use
  Company Number: 05P-163-0310794-00

PATIENT
  Age: 44 Year
  Sex: Male
  Weight: 73.9363 kg

DRUGS (11)
  1. KALETRA [Suspect]
     Indication: HIV INFECTION
     Dosage: 3 IN 1 D
     Dates: start: 20030101
  2. BLINDED SCH 417690 STUDY [Suspect]
     Indication: HIV INFECTION
     Dosage: 15 MG, 1 IN 1 D, ORAL
     Route: 048
     Dates: start: 20050719
  3. INDINAVIR SULFATE [Suspect]
     Indication: HIV INFECTION
     Dosage: 800 MG, 2 IN 1 D
     Dates: start: 20030101
  4. DIDANOSINE [Concomitant]
  5. VIREAD [Concomitant]
  6. GEMFIBROZIL [Concomitant]
  7. AMLODIPINE BESYLATE [Concomitant]
  8. FLUTICASONE PROPIONATE [Concomitant]
  9. PENTAMIDINE [Concomitant]
  10. FLUCONAZOLE [Concomitant]
  11. MYCELEX [Concomitant]

REACTIONS (1)
  - BLOOD TRIGLYCERIDES INCREASED [None]
